FAERS Safety Report 5008210-X (Version None)
Quarter: 2006Q2

REPORT INFORMATION
  Report Type: 
  Country: None (occurrence: None)
  Receive Date: 20060404
  Receipt Date: 20060124
  Transmission Date: 20061013
  Serious: No
  Sender: FDA-Public Use
  Company Number: US200601004823

PATIENT
  Age: 75 Year
  Sex: Female

DRUGS (1)
  1. CYMBALTA [Suspect]
     Dosage: SEE IMAGE
     Route: 048

REACTIONS (2)
  - DYSPHAGIA [None]
  - SPEECH DISORDER [None]
